FAERS Safety Report 7210440-3 (Version None)
Quarter: 2010Q4

REPORT INFORMATION
  Report Type: 
  Country: None (occurrence: None)
  Receive Date: 20101223
  Receipt Date: 20101213
  Transmission Date: 20110411
  Serious: Yes (Death)
  Sender: FDA-Public Use
  Company Number: 08-187

PATIENT
  Age: 59 Year
  Sex: Male

DRUGS (1)
  1. FAZACLO ODT [Suspect]
     Dosage: 500 MG PO DAILY
     Route: 048
     Dates: start: 20071122, end: 20080216

REACTIONS (1)
  - CROHN'S DISEASE [None]
